FAERS Safety Report 8961729 (Version 3)
Quarter: 2013Q1

REPORT INFORMATION
  Report Type: Spontaneous
  Country: FR (occurrence: FR)
  Receive Date: 20121213
  Receipt Date: 20130225
  Transmission Date: 20140127
  Serious: Yes (Hospitalization, Other)
  Sender: FDA-Public Use
  Company Number: FR-JNJFOC-20121204141

PATIENT
  Age: 75 Year
  Sex: Male

DRUGS (8)
  1. XARELTO [Suspect]
     Indication: ATRIAL FIBRILLATION
     Route: 048
     Dates: start: 20120930, end: 20121108
  2. XARELTO [Suspect]
     Indication: CEREBROVASCULAR ACCIDENT PROPHYLAXIS
     Route: 048
     Dates: start: 20120930, end: 20121108
  3. CORDARONE [Suspect]
     Indication: CARDIOVERSION
     Dosage: 5 TO 10 TABLETS
     Route: 048
     Dates: start: 20121105, end: 20121108
  4. METFORMINE [Concomitant]
     Indication: TYPE 2 DIABETES MELLITUS
     Route: 048
     Dates: end: 20121108
  5. TIABENDAZOLE [Concomitant]
     Route: 065
  6. INEGY [Concomitant]
     Indication: HYPERCHOLESTEROLAEMIA
     Route: 048
     Dates: end: 20121108
  7. TRIATEC [Concomitant]
     Indication: HYPERTENSION
     Route: 048
     Dates: end: 20121108
  8. CARDENSIEL [Concomitant]
     Route: 048

REACTIONS (7)
  - Decreased appetite [Unknown]
  - Hepatic enzyme increased [Recovered/Resolved]
  - Renal failure acute [Unknown]
  - Nausea [Unknown]
  - Off label use [Unknown]
  - Hepatitis [Recovered/Resolved]
  - Dyspepsia [Unknown]
